FAERS Safety Report 11545859 (Version 2)
Quarter: 2016Q1

REPORT INFORMATION
  Report Type: Spontaneous
  Country: JP (occurrence: JP)
  Receive Date: 20150924
  Receipt Date: 20160122
  Transmission Date: 20160525
  Serious: Yes (Other)
  Sender: FDA-Public Use
  Company Number: JP-GLAXOSMITHKLINE-A201409103

PATIENT
  Sex: Female

DRUGS (5)
  1. NORVIR [Concomitant]
     Active Substance: RITONAVIR
     Indication: HIV INFECTION
     Dosage: 100 MG, UNK
     Route: 064
     Dates: start: 20130122, end: 20130623
  2. ZIDOVUDINE. [Suspect]
     Active Substance: ZIDOVUDINE
     Indication: HIV INFECTION
     Dosage: 400 MG, UNK
     Route: 064
     Dates: start: 20130122, end: 20130623
  3. RETROVIR [Concomitant]
     Active Substance: ZIDOVUDINE
     Dosage: 2 ML, UNK
     Route: 048
     Dates: start: 20130626
  4. LAMIVUDINE. [Suspect]
     Active Substance: LAMIVUDINE
     Indication: HIV INFECTION
     Dosage: 300 MG, UNK
     Route: 064
     Dates: start: 20130122, end: 20130623
  5. PREZISTANAIVE [Concomitant]
     Active Substance: DARUNAVIR
     Indication: HIV INFECTION
     Dosage: 800 MG, UNK
     Route: 064
     Dates: start: 20130122, end: 20130623

REACTIONS (2)
  - Periventricular leukomalacia [Not Recovered/Not Resolved]
  - Foetal exposure during pregnancy [Unknown]
